FAERS Safety Report 5898432-8 (Version None)
Quarter: 2008Q3

REPORT INFORMATION
  Report Type: 
  Country: None (occurrence: None)
  Receive Date: 20080925
  Receipt Date: 20071101
  Transmission Date: 20090109
  Serious: No
  Sender: FDA-Public Use
  Company Number: A0691043A

PATIENT
  Age: 33 Year
  Sex: Female

DRUGS (5)
  1. BUPROPION HYDROCHLORIDE [Suspect]
     Indication: DEPRESSION
     Dosage: 300MG PER DAY
     Route: 048
     Dates: start: 20070801
  2. WELLBUTRIN XL [Suspect]
     Indication: DEPRESSION
     Dosage: 300MG PER DAY
     Route: 048
     Dates: start: 20071010
  3. EFFEXOR XR [Suspect]
     Indication: DRUG USE FOR UNKNOWN INDICATION
     Dosage: 300MG PER DAY
     Route: 048
  4. DEPO-PROVERA [Concomitant]
  5. CLARITIN [Concomitant]
     Dates: end: 20070901

REACTIONS (1)
  - RASH [None]
